FAERS Safety Report 17240264 (Version 2)
Quarter: 2020Q1

REPORT INFORMATION
  Report Type: Report from Study
  Country: None (occurrence: CA)
  Receive Date: 20200107
  Receipt Date: 20200123
  Transmission Date: 20200409
  Serious: Yes (Other)
  Sender: FDA-Public Use
  Company Number: CA-ABBVIE-20K-028-3220406-00

PATIENT
  Age: 16 Year
  Sex: Male
  Weight: 66 kg

DRUGS (3)
  1. METHOTREXATE. [Concomitant]
     Active Substance: METHOTREXATE
     Indication: JUVENILE IDIOPATHIC ARTHRITIS
     Route: 058
     Dates: start: 200609
  2. HUMIRA [Suspect]
     Active Substance: ADALIMUMAB
     Indication: JUVENILE IDIOPATHIC ARTHRITIS
     Route: 058
     Dates: start: 20170830
  3. HUMIRA [Suspect]
     Active Substance: ADALIMUMAB
     Route: 058
     Dates: end: 20191215

REACTIONS (4)
  - Nasopharyngitis [Recovered/Resolved]
  - Osteoarthritis [Unknown]
  - Synovitis [Unknown]
  - Bone decalcification [Recovered/Resolved]

NARRATIVE: CASE EVENT DATE: 2019
